FAERS Safety Report 6921956-9 (Version None)
Quarter: 2010Q3

REPORT INFORMATION
  Report Type: 
  Country: None (occurrence: None)
  Receive Date: 20100806
  Receipt Date: 20100507
  Transmission Date: 20110219
  Serious: No
  Sender: FDA-Public Use
  Company Number: 2010-06490

PATIENT
  Age: 68 Year
  Sex: Female

DRUGS (3)
  1. RAPAFLO [Suspect]
     Dosage: 1 CAPSUL, DAILY WITH BREAKFAST, ORAL; 1 CAPSUL, DAILY WITH BREAKFAST, ORAL
     Route: 048
     Dates: start: 20100503, end: 20100503
  2. RAPAFLO [Suspect]
     Dosage: 1 CAPSUL, DAILY WITH BREAKFAST, ORAL; 1 CAPSUL, DAILY WITH BREAKFAST, ORAL
     Route: 048
     Dates: start: 20100507, end: 20100507
  3. LISINOPRIL AND HYDROCHLOROTHIAZIDE [Concomitant]

REACTIONS (4)
  - ANXIETY [None]
  - CONDITION AGGRAVATED [None]
  - CRYING [None]
  - NERVOUSNESS [None]
